FAERS Safety Report 7435101-7 (Version None)
Quarter: 2011Q2

REPORT INFORMATION
  Report Type: 
  Country: None (occurrence: None)
  Receive Date: 20110425
  Receipt Date: 20110418
  Transmission Date: 20111010
  Serious: Yes (Hospitalization, Disabling)
  Sender: FDA-Public Use
  Company Number: PHEH2009US18510

PATIENT
  Sex: Male

DRUGS (23)
  1. KLOR-CON [Concomitant]
     Dosage: 1 DF, BID
     Route: 048
  2. TIZANIDINE HYDROCHLORIDE [Concomitant]
     Dosage: 40 MG, QID
  3. ZETIA [Concomitant]
     Dosage: 10 MG, QOD
  4. SIMVASTATIN [Concomitant]
     Dosage: 40 MG, QOD
  5. ADVAIR DISKUS 100/50 [Concomitant]
     Dosage: 230/21 QHS
  6. METANX [Concomitant]
     Dosage: 1 DF, QD
  7. ASPIRIN [Concomitant]
     Dosage: 325 MG, QD
  8. AMLODIPINE BESYLATE AND BENAZEPRIL HCL [Concomitant]
     Dosage: 5/20 QD
  9. PROVIGIL [Concomitant]
     Dosage: 200 MG, BID
  10. CALCIUM WITH VITAMIN D [Concomitant]
     Dosage: 500 MG, QD
  11. CITALOPRAM [Concomitant]
     Dosage: 40MG, OD
     Route: 048
  12. ASPIRIN [Concomitant]
     Dosage: 8 MG, OD
     Route: 048
  13. EXTAVIA [Suspect]
     Indication: MULTIPLE SCLEROSIS
     Dosage: 0.25 MG, EVERY OTHER DAY
     Route: 058
     Dates: start: 20091215
  14. FLUOXETINE [Concomitant]
     Dosage: 10 MG, QD
  15. POTASSIUM CHLORIDE [Concomitant]
     Dosage: 10 MG, BID
  16. BACLOFEN [Concomitant]
     Dosage: 20 MG, QID
  17. FISH OIL [Concomitant]
     Dosage: 1200 MG, TID
  18. PANTOPRAZOLE SODIUM [Concomitant]
     Dosage: 40MG, OD
     Route: 048
  19. PROTONIX [Concomitant]
     Dosage: 40 MG, QD
  20. SPIRIVA [Concomitant]
     Dosage: 2 DF(PUFFS), QD
  21. FUROSEMIDE [Concomitant]
     Dosage: 40 MG, QD
  22. OXYGEN THERAPY [Concomitant]
     Dosage: 20 L, UNK
  23. LAMOTRIGINE [Concomitant]
     Dosage: 100 MG, BID

REACTIONS (7)
  - INJECTION SITE SCAB [None]
  - INJECTION SITE PAIN [None]
  - MUSCULOSKELETAL STIFFNESS [None]
  - SENSORY DISTURBANCE [None]
  - COLITIS [None]
  - INJECTION SITE HAEMATOMA [None]
  - INJECTION SITE MASS [None]
